FAERS Safety Report 8094113-3 (Version None)
Quarter: 2012Q1

REPORT INFORMATION
  Report Type: 
  Country: None (occurrence: None)
  Receive Date: 20120131
  Receipt Date: 20120119
  Transmission Date: 20120608
  Serious: Yes (Other)
  Sender: FDA-Public Use
  Company Number: JP-BRISTOL-MYERS SQUIBB COMPANY-16369001

PATIENT
  Age: 50 Year
  Sex: Male

DRUGS (2)
  1. IRINOTECAN HCL [Suspect]
     Indication: RECTAL CANCER METASTATIC
  2. ERBITUX [Suspect]
     Indication: RECTAL CANCER METASTATIC

REACTIONS (1)
  - DISSEMINATED INTRAVASCULAR COAGULATION [None]
